FAERS Safety Report 7526408-3 (Version None)
Quarter: 2011Q2

REPORT INFORMATION
  Report Type: 
  Country: None (occurrence: None)
  Receive Date: 20110606
  Receipt Date: 20110601
  Transmission Date: 20111010
  Serious: No
  Sender: FDA-Public Use
  Company Number: US-PFIZER INC-2011119398

PATIENT
  Sex: Male
  Weight: 77.098 kg

DRUGS (3)
  1. VENLAFAXINE HCL [Suspect]
     Indication: EMOTIONAL DISORDER
  2. VENLAFAXINE HCL [Suspect]
     Dosage: 150 MG
  3. VENLAFAXINE HCL [Suspect]
     Indication: DEPRESSION
     Dosage: 150 MG, 1X/DAY
     Route: 048
     Dates: start: 20110301

REACTIONS (2)
  - DRUG SCREEN FALSE POSITIVE [None]
  - HYPERSOMNIA [None]
